FAERS Safety Report 6815364-9 (Version None)
Quarter: 2010Q3

REPORT INFORMATION
  Report Type: 
  Country: None (occurrence: None)
  Receive Date: 20100702
  Receipt Date: 20100621
  Transmission Date: 20110219
  Serious: Yes (Hospitalization)
  Sender: FDA-Public Use
  Company Number: AU-AMGEN-QUU420251

PATIENT
  Sex: Male

DRUGS (4)
  1. ENBREL [Suspect]
     Indication: PRODUCT USED FOR UNKNOWN INDICATION
     Dosage: UNKNOWN
     Dates: start: 20100617
  2. CHOLESTEROL- AND TRIGLYCERIDE REDUCERS [Concomitant]
  3. UNSPECIFIED ANTIHYPERTENSIVE AGENT [Concomitant]
  4. UNSPECIFIED ANTIBIOTIC [Concomitant]

REACTIONS (3)
  - CHEST DISCOMFORT [None]
  - DIZZINESS [None]
  - HEART RATE IRREGULAR [None]
